FAERS Safety Report 9408450 (Version 2)
Quarter: 2013Q3

REPORT INFORMATION
  Report Type: Spontaneous
  Country: US (occurrence: None)
  Receive Date: 20130716
  Receipt Date: 20130801
  Transmission Date: 20140515
  Serious: Yes (Death, Other)
  Sender: FDA-Public Use
  Company Number: 2013-270

PATIENT
  Age: 60 Year
  Sex: Female

DRUGS (15)
  1. FAZACLO (CLOZAPINE, USP) ODT (ORAL DISINTEGRATING TABLET) [Suspect]
     Indication: SCHIZOPHRENIA
     Route: 048
     Dates: start: 20121105
  2. HUMALOG (INSULIN LISPRO) [Concomitant]
  3. LANTUS (INSULIN GLARGINE) [Concomitant]
  4. LOVENOX (ENOXAPARIN SODIUM) [Concomitant]
  5. NORVASC (AMLODIPINE BESILATE) [Concomitant]
  6. RISPERDAL (RISPERIDONE) [Concomitant]
  7. CALCIUM +D (CALCIUM CARBONATE, COLECALCIFEROL) [Concomitant]
  8. COGENTIN (BENZATROPINE MEDILATE) [Concomitant]
  9. LISINOPRIL (LISINOPRIL) [Concomitant]
  10. LASIX (FUROSEMIDE) [Concomitant]
  11. COLACE [Concomitant]
  12. LACTULOSE (LACTULOSE) [Concomitant]
  13. OXYIR (OXYCODONE HYDROCHLORIDE) [Concomitant]
  14. MIRALAX (MARCROGOL) [Concomitant]
  15. PRILOSEC [Concomitant]

REACTIONS (6)
  - Death [None]
  - Cardio-respiratory arrest [None]
  - Aspiration [None]
  - Renal failure acute [None]
  - Renal tubular necrosis [None]
  - Nausea [None]
